FAERS Safety Report 7903077-1 (Version None)
Quarter: 2011Q4

REPORT INFORMATION
  Report Type: 
  Country: None (occurrence: None)
  Receive Date: 20111107
  Receipt Date: 20111031
  Transmission Date: 20120403
  Serious: No
  Sender: FDA-Public Use
  Company Number: 2011SP033262

PATIENT
  Sex: Female

DRUGS (1)
  1. SYCREST (ASENAPINE /05706901/) [Suspect]
     Indication: MANIA
     Dosage: 20 MG;QD

REACTIONS (2)
  - PRODUCT TASTE ABNORMAL [None]
  - DRUG INEFFECTIVE [None]
